FAERS Safety Report 9097558 (Version 2)
Quarter: 2013Q1

REPORT INFORMATION
  Report Type: Spontaneous
  Country: DE (occurrence: DE)
  Receive Date: 20130212
  Receipt Date: 20130221
  Transmission Date: 20140127
  Serious: Yes (Death)
  Sender: FDA-Public Use
  Company Number: DE-BAXTER-2013BAX005109

PATIENT
  Sex: Female

DRUGS (4)
  1. DIANEAL PD4 GLUCOSE 2,27 % W/V [Suspect]
     Indication: PERITONEAL DIALYSIS
     Route: 033
     Dates: start: 20070701
  2. DIANEAL PD4 GLUCOSE 3,86 % W/V [Suspect]
     Indication: PERITONEAL DIALYSIS
     Route: 033
     Dates: start: 20070701
  3. EXTRANEAL [Suspect]
     Indication: PERITONEAL DIALYSIS
     Route: 033
     Dates: start: 20070701
  4. NUTRINEAL PD4 MIT 1,1% AMINOS?UREN [Suspect]
     Indication: PERITONEAL DIALYSIS
     Route: 033
     Dates: start: 20070701

REACTIONS (1)
  - Myocardial infarction [Fatal]
